FAERS Safety Report 6590308-6 (Version None)
Quarter: 2010Q1

REPORT INFORMATION
  Report Type: 
  Country: None (occurrence: None)
  Receive Date: 20100219
  Receipt Date: 20100215
  Transmission Date: 20100710
  Serious: Yes (Other)
  Sender: FDA-Public Use
  Company Number: CHPA2010US03251

PATIENT
  Age: 53 Year
  Sex: Female
  Weight: 70.295 kg

DRUGS (2)
  1. EX-LAX REG STR CHOCOLATED LAX PCS SEN (NCH) [Suspect]
     Indication: CONSTIPATION
     Dosage: 45 MG, EVERY SECOND NIGHT
     Route: 048
  2. AMITRIPTYLINE HCL [Concomitant]
     Dosage: UNK, UNK

REACTIONS (5)
  - COLONOSCOPY [None]
  - GASTROINTESTINAL HAEMORRHAGE [None]
  - INCORRECT DOSE ADMINISTERED [None]
  - INTENTIONAL DRUG MISUSE [None]
  - ULCER [None]
